FAERS Safety Report 9254366 (Version 2)
Quarter: 2013Q2

REPORT INFORMATION
  Report Type: Spontaneous
  Country: JP (occurrence: None)
  Receive Date: 20130419
  Receipt Date: 20130508
  Transmission Date: 20140414
  Serious: Yes (Other)
  Sender: FDA-Public Use
  Company Number: TCI2013A01826

PATIENT
  Age: 78 Year
  Sex: Male

DRUGS (1)
  1. MESNA [Suspect]
     Indication: TYPE 2 DIABETES MELLITUS
     Route: 048
     Dates: start: 20110929, end: 20120326

REACTIONS (1)
  - Platelet count decreased [None]
